FAERS Safety Report 18567591 (Version 1)
Quarter: 2020Q4

REPORT INFORMATION
  Report Type: Spontaneous
  Country: BY (occurrence: BY)
  Receive Date: 20201202
  Receipt Date: 20201202
  Transmission Date: 20210114
  Serious: Yes (Other)
  Sender: FDA-Public Use
  Company Number: BY-JNJFOC-20201142354

PATIENT
  Age: 47 Year
  Sex: Male
  Weight: 65 kg

DRUGS (16)
  1. CYCLOSERINE. [Suspect]
     Active Substance: CYCLOSERINE
     Indication: TUBERCULOSIS
     Dosage: DOSE- 750 (UNITS NOT REPORTED)
     Route: 048
     Dates: start: 20200917, end: 20201111
  2. SIRTURO [Suspect]
     Active Substance: BEDAQUILINE FUMARATE
     Indication: TUBERCULOSIS
     Route: 048
     Dates: start: 20200917
  3. LINEZOLID. [Suspect]
     Active Substance: LINEZOLID
     Indication: TUBERCULOSIS
     Dosage: DOSE- 600 (UNITS NOT REPORTED)
     Route: 048
     Dates: start: 20200917
  4. CLOPIDOGREL [Concomitant]
     Active Substance: CLOPIDOGREL BISULFATE
     Indication: ANGINA PECTORIS
     Route: 048
     Dates: start: 20200819
  5. DACLATASVIR. [Concomitant]
     Active Substance: DACLATASVIR
     Indication: HEPATITIS C
     Route: 048
     Dates: start: 20200902
  6. FOLIC ACID. [Concomitant]
     Active Substance: FOLIC ACID
     Indication: ANAEMIA
     Route: 048
     Dates: start: 20200918
  7. SIRTURO [Suspect]
     Active Substance: BEDAQUILINE FUMARATE
     Dosage: DOSE- 200 (UNITS NOT REPORTED)
     Route: 048
     Dates: start: 20201002
  8. CLOFAZIMINE [Suspect]
     Active Substance: CLOFAZIMINE
     Indication: TUBERCULOSIS
     Dosage: DOSE- 100 (UNITS NOT REPORTED)
     Route: 048
     Dates: start: 20200917
  9. SOFOSBUVIR [Concomitant]
     Active Substance: SOFOSBUVIR
     Indication: HEPATITIS C
     Route: 048
     Dates: start: 20200902
  10. SPIRONOLACTONE. [Concomitant]
     Active Substance: SPIRONOLACTONE
     Indication: ANGINA PECTORIS
     Route: 048
     Dates: start: 20200819
  11. COTRIMOXAZOLE [Concomitant]
     Active Substance: SULFAMETHOXAZOLE\TRIMETHOPRIM
     Indication: HIV INFECTION
     Route: 048
     Dates: start: 20200917
  12. DUOVIR [Concomitant]
     Indication: HIV INFECTION
     Route: 048
     Dates: start: 20201001
  13. BISOPROLOL [Concomitant]
     Active Substance: BISOPROLOL
     Indication: ANGINA PECTORIS
     Route: 048
     Dates: start: 20200819
  14. DOLUTEGRAVIR [Concomitant]
     Active Substance: DOLUTEGRAVIR
     Indication: HIV INFECTION
     Route: 048
     Dates: start: 20201001
  15. DELAMANID [Suspect]
     Active Substance: DELAMANID
     Indication: TUBERCULOSIS
     Dosage: DOSE- 200 (UNITS NOT REPORTED)
     Route: 048
     Dates: start: 20200917
  16. ENTEROSEPT [NIFUROXAZIDE] [Concomitant]
     Indication: DIARRHOEA
     Route: 048
     Dates: start: 20201002

REACTIONS (1)
  - Epilepsy [Unknown]

NARRATIVE: CASE EVENT DATE: 20200928
